FAERS Safety Report 17870826 (Version 3)
Quarter: 2020Q2

REPORT INFORMATION
  Report Type: Report from Study
  Country: US (occurrence: US)
  Receive Date: 20200608
  Receipt Date: 20200611
  Transmission Date: 20200714
  Serious: Yes (Other)
  Sender: FDA-Public Use
  Company Number: NVSC2020US157897

PATIENT
  Sex: Female

DRUGS (2)
  1. ENTRESTO [Suspect]
     Active Substance: SACUBITRIL\VALSARTAN
     Indication: CARDIAC FAILURE
     Dosage: 24 MG, BID
     Route: 048
  2. ENTRESTO [Suspect]
     Active Substance: SACUBITRIL\VALSARTAN
     Dosage: UNK UNK, BID
     Route: 048

REACTIONS (3)
  - Diabetes mellitus [Unknown]
  - Cardiac dysfunction [Unknown]
  - Heart rate decreased [Unknown]
